FAERS Safety Report 10381021 (Version 1)
Quarter: 2014Q1

REPORT INFORMATION
  Report Type: Spontaneous
  Country: US (occurrence: None)
  Receive Date: 20140306
  Receipt Date: 20140306
  Transmission Date: 20141002
  Serious: Yes (Hospitalization)
  Sender: FDA-Public Use
  Company Number: 163-21880-13020858

PATIENT
  Age: 54 Year
  Sex: Female

DRUGS (6)
  1. REVLIMID (LENALIDOMIDE) (10 MILLIGRAM, CAPSULES) [Suspect]
     Indication: MYELODYSPLASTIC SYNDROME
     Route: 048
     Dates: start: 20121002
  2. DURAGESIC (FENTANYL) [Concomitant]
  3. PERCOCET (OXYCOCET) [Concomitant]
  4. NEURONTIN (GABAPENTIN) [Concomitant]
  5. CYMBALTA [Concomitant]
  6. XANAX (ALPRAZOLAM) [Concomitant]

REACTIONS (1)
  - Hypoxia [None]
